FAERS Safety Report 19270849 (Version 1)
Quarter: 2021Q2

REPORT INFORMATION
  Report Type: Spontaneous
  Country: US (occurrence: US)
  Receive Date: 20210518
  Receipt Date: 20210518
  Transmission Date: 20210717
  Serious: Yes (Other)
  Sender: FDA-Public Use
  Company Number: US-SA-2021SA156203

PATIENT
  Sex: Female

DRUGS (1)
  1. PLAVIX [Suspect]
     Active Substance: CLOPIDOGREL BISULFATE
     Dosage: UNK

REACTIONS (7)
  - Gait inability [Unknown]
  - Rheumatoid arthritis [Unknown]
  - Haemorrhage [Unknown]
  - Nocturia [Unknown]
  - Feeling abnormal [Unknown]
  - Pain [Unknown]
  - Insomnia [Unknown]
